FAERS Safety Report 10733829 (Version 2)
Quarter: 2015Q1

REPORT INFORMATION
  Report Type: Report from Study
  Country: AU (occurrence: AU)
  Receive Date: 20150123
  Receipt Date: 20150127
  Transmission Date: 20150721
  Serious: Yes (Death)
  Sender: FDA-Public Use
  Company Number: PHHY2015AU008688

PATIENT

DRUGS (1)
  1. AFINITOR [Suspect]
     Active Substance: EVEROLIMUS
     Indication: RENAL CELL CARCINOMA
     Route: 065

REACTIONS (1)
  - Adverse drug reaction [Fatal]
